FAERS Safety Report 14577550 (Version 1)
Quarter: 2018Q1

REPORT INFORMATION
  Report Type: Spontaneous
  Country: GB (occurrence: GB)
  Receive Date: 20180227
  Receipt Date: 20180227
  Transmission Date: 20180509
  Serious: Yes (Other)
  Sender: FDA-Public Use
  Company Number: GB-UCBSA-2018006914

PATIENT
  Age: 16 Year
  Sex: Female

DRUGS (3)
  1. KEPPRA [Suspect]
     Active Substance: LEVETIRACETAM
     Indication: EPILEPSY
     Dosage: UNK, 2X/DAY (BID); 1000 DAILY
  2. ETHINYLESTRADIOL TABLETS BP [Suspect]
     Active Substance: ETHINYL ESTRADIOL
     Dosage: 50 ?G, ONCE DAILY (QD)
     Route: 048
     Dates: start: 2018
  3. ETHINYLESTRADIOL TABLETS BP [Suspect]
     Active Substance: ETHINYL ESTRADIOL
     Indication: OVARIAN FAILURE
     Dosage: 2.5 ?G, ONCE DAILY (QD)
     Route: 048
     Dates: start: 201801, end: 2018

REACTIONS (2)
  - Drug prescribing error [Unknown]
  - Ovarian failure [Unknown]

NARRATIVE: CASE EVENT DATE: 2018
